FAERS Safety Report 4456857-1 (Version None)
Quarter: 2004Q3

REPORT INFORMATION
  Report Type: 
  Country: None (occurrence: None)
  Receive Date: 20040921
  Receipt Date: 20040909
  Transmission Date: 20050211
  Serious: Yes (Other)
  Sender: FDA-Public Use
  Company Number: A03200402947

PATIENT
  Age: 46 Year
  Sex: Female

DRUGS (3)
  1. AMBIEN [Suspect]
     Indication: MIGRAINE
     Dosage: ORAL
     Route: 048
  2. AMBIEN [Suspect]
     Indication: SEDATION
     Dosage: ORAL
     Route: 048
  3. AMBIEN [Suspect]
     Indication: SLEEP DISORDER
     Dosage: ORAL
     Route: 048

REACTIONS (2)
  - CONVULSION [None]
  - FEELING ABNORMAL [None]
